FAERS Safety Report 6242144-8 (Version None)
Quarter: 2009Q2

REPORT INFORMATION
  Report Type: 
  Country: None (occurrence: None)
  Receive Date: 20090622
  Receipt Date: 20090622
  Transmission Date: 20091009
  Serious: Yes (Other)
  Sender: FDA-Public Use
  Company Number: None

PATIENT
  Sex: Male
  Weight: 124.1041 kg

DRUGS (1)
  1. RISPERIDONE [Suspect]
     Indication: SCHIZOPHRENIA, PARANOID TYPE
     Dosage: 3 MG BID PO
     Route: 048
     Dates: start: 20090519

REACTIONS (3)
  - ANXIETY [None]
  - FEELING ABNORMAL [None]
  - RESTLESSNESS [None]
